FAERS Safety Report 8444558-4 (Version None)
Quarter: 2012Q2

REPORT INFORMATION
  Report Type: 
  Country: None (occurrence: None)
  Receive Date: 20120618
  Receipt Date: 20120608
  Transmission Date: 20120825
  Serious: Yes (Hospitalization, Other)
  Sender: FDA-Public Use
  Company Number: US-BAYER-2012-058171

PATIENT
  Age: 28 Year
  Sex: Female
  Weight: 114 kg

DRUGS (6)
  1. CLARITHROMYCIN [Concomitant]
     Dosage: 500 MG, UNK
     Route: 048
  2. DROSPIRENONE AND ETHINYL ESTRADIOL [Suspect]
  3. ZOLPIDEM TARTRATE [Concomitant]
     Indication: INSOMNIA
     Dosage: 5 MG, UNK
     Route: 048
  4. YAZ [Suspect]
  5. YASMIN [Suspect]
  6. ZOLOFT [Concomitant]
     Indication: POSTPARTUM DEPRESSION
     Dosage: 100 MG, QD
     Route: 048

REACTIONS (3)
  - PULMONARY EMBOLISM [None]
  - CHOLELITHIASIS [None]
  - THROMBOPHLEBITIS SUPERFICIAL [None]
